FAERS Safety Report 16849981 (Version 1)
Quarter: 2019Q3

REPORT INFORMATION
  Report Type: Spontaneous
  Country: US (occurrence: US)
  Receive Date: 20190925
  Receipt Date: 20190925
  Transmission Date: 20191005
  Serious: No
  Sender: FDA-Public Use
  Company Number: US-TAKEDA-2019TUS053726

PATIENT
  Sex: Female
  Weight: 63.04 kg

DRUGS (2)
  1. RITUXAN [Suspect]
     Active Substance: RITUXIMAB
     Indication: LYMPHOCYTIC LYMPHOMA
     Dosage: UNK
     Route: 042
     Dates: start: 201907
  2. VELCADE [Suspect]
     Active Substance: BORTEZOMIB
     Indication: LYMPHOCYTIC LYMPHOMA
     Dosage: UNK
     Route: 058
     Dates: start: 201907

REACTIONS (2)
  - Haemoglobin decreased [Unknown]
  - Off label use [Unknown]
